FAERS Safety Report 8885153 (Version 1)
Quarter: 2012Q4

REPORT INFORMATION
  Report Type: 
  Country: CN (occurrence: CN)
  Receive Date: 20121102
  Receipt Date: 20121102
  Transmission Date: 20130627
  Serious: No
  Sender: FDA-Public Use
  Company Number: CN-ELI_LILLY_AND_COMPANY-CN201211000207

PATIENT
  Age: 26 Year
  Sex: Male
  Weight: 58 kg

DRUGS (1)
  1. DULOXETINE HYDROCHLORIDE [Suspect]
     Indication: DEPRESSION
     Dosage: 60 mg, qd
     Route: 048

REACTIONS (1)
  - Alanine aminotransferase abnormal [Recovering/Resolving]
